FAERS Safety Report 18230581 (Version 1)
Quarter: 2020Q3

REPORT INFORMATION
  Report Type: Other
  Country: FR (occurrence: FR)
  Receive Date: 20200903
  Receipt Date: 20200903
  Transmission Date: 20201105
  Serious: Yes (Other)
  Sender: FDA-Public Use
  Company Number: FR-ROCHE-2668122

PATIENT
  Age: 73 Year
  Sex: Female
  Weight: 73 kg

DRUGS (14)
  1. BENDAMUSTINE [Suspect]
     Active Substance: BENDAMUSTINE
     Indication: DIFFUSE LARGE B-CELL LYMPHOMA
     Dosage: C1
     Route: 042
     Dates: start: 20200702, end: 20200702
  2. BACTRIM [Concomitant]
     Active Substance: SULFAMETHOXAZOLE\TRIMETHOPRIM
     Route: 048
  3. ACTISKENAN [Concomitant]
     Active Substance: MORPHINE SULFATE
     Route: 048
     Dates: start: 20200702, end: 20200728
  4. POLATUZUMAB VEDOTIN. [Suspect]
     Active Substance: POLATUZUMAB VEDOTIN
     Dosage: C2
     Route: 042
     Dates: start: 20200728, end: 20200728
  5. ZELITREX [Concomitant]
     Active Substance: VALACYCLOVIR HYDROCHLORIDE
     Route: 048
  6. POLATUZUMAB VEDOTIN. [Suspect]
     Active Substance: POLATUZUMAB VEDOTIN
     Dosage: C2
     Route: 042
     Dates: start: 20200814, end: 20200814
  7. FOLINORAL [Concomitant]
     Active Substance: LEUCOVORIN CALCIUM
     Route: 048
  8. BENDAMUSTINE [Suspect]
     Active Substance: BENDAMUSTINE
     Dosage: C2
     Route: 042
     Dates: start: 20200815, end: 20200815
  9. RITUXIMAB. [Suspect]
     Active Substance: RITUXIMAB
     Indication: DIFFUSE LARGE B-CELL LYMPHOMA
     Dosage: C1
     Route: 042
     Dates: start: 20200702, end: 20200702
  10. BENDAMUSTINE [Suspect]
     Active Substance: BENDAMUSTINE
     Dosage: C2
     Route: 042
     Dates: start: 20200728, end: 20200728
  11. RITUXIMAB. [Suspect]
     Active Substance: RITUXIMAB
     Dosage: C2
     Route: 042
     Dates: start: 20200814, end: 20200814
  12. SKENAN [Concomitant]
     Active Substance: MORPHINE SULFATE
     Route: 048
     Dates: start: 20200702, end: 20200728
  13. POLATUZUMAB VEDOTIN. [Suspect]
     Active Substance: POLATUZUMAB VEDOTIN
     Indication: DIFFUSE LARGE B-CELL LYMPHOMA
     Dosage: C1
     Route: 042
     Dates: start: 20200702, end: 20200702
  14. RITUXIMAB. [Suspect]
     Active Substance: RITUXIMAB
     Dosage: C2
     Route: 042
     Dates: start: 20200728, end: 20200728

REACTIONS (3)
  - Oxygen saturation decreased [Recovered/Resolved]
  - Hypotension [Recovered/Resolved]
  - Pyrexia [Recovered/Resolved]

NARRATIVE: CASE EVENT DATE: 20200728
